FAERS Safety Report 18016791 (Version 4)
Quarter: 2022Q3

REPORT INFORMATION
  Report Type: Report from Study
  Country: US (occurrence: US)
  Receive Date: 20200713
  Receipt Date: 20220713
  Transmission Date: 20221027
  Serious: No
  Sender: FDA-Public Use
  Company Number: US-VANDA PHARMACEUTICALS, INC-2020TASUS003965

PATIENT
  Sex: Female

DRUGS (2)
  1. HETLIOZ [Suspect]
     Active Substance: TASIMELTEON
     Indication: Non-24-hour sleep-wake disorder
     Dosage: 20 MG, QD (1 HR BEFORE BEDTIME, AT THE SAME TIME EVERY NIGHT)
     Route: 048
     Dates: start: 202003
  2. HETLIOZ [Suspect]
     Active Substance: TASIMELTEON
     Dosage: 20 MG, QD (1 HR BEFORE BEDTIME, AT THE SAME TIME EVERY NIGHT)
     Route: 048
     Dates: start: 20200303

REACTIONS (5)
  - Illness [Unknown]
  - Malaise [Unknown]
  - Restlessness [Unknown]
  - Tremor [Unknown]
  - Headache [Unknown]
